FAERS Safety Report 5876611-3 (Version None)
Quarter: 2008Q3

REPORT INFORMATION
  Report Type: 
  Country: None (occurrence: None)
  Receive Date: 20080908
  Receipt Date: 20080828
  Transmission Date: 20090109
  Serious: Yes (Death, Life-Threatening, Hospitalization)
  Sender: FDA-Public Use
  Company Number: US-JNJFOC-20080805799

PATIENT
  Age: 57 Year
  Sex: Male
  Weight: 121.564 kg

DRUGS (4)
  1. DACOGEN [Suspect]
     Indication: ACUTE MYELOID LEUKAEMIA
     Dosage: 50 MG, 1 IN 1 DAY, INTRAVENOUS
     Route: 042
     Dates: start: 20080602, end: 20080606
  2. BACTRIM DS [Concomitant]
  3. ETOPIDE (ETOPOSIDE) [Concomitant]
  4. FOSINOPRIL SODIUM [Concomitant]

REACTIONS (13)
  - CHILLS [None]
  - DYSPNOEA [None]
  - FATIGUE [None]
  - HAEMATOCRIT DECREASED [None]
  - HAEMOGLOBIN DECREASED [None]
  - HYPERHIDROSIS [None]
  - HYPOPHAGIA [None]
  - LEUKAEMIC INFILTRATION PULMONARY [None]
  - MALAISE [None]
  - NEUTROPENIA [None]
  - PLATELET COUNT DECREASED [None]
  - POLLAKIURIA [None]
  - PYREXIA [None]
